FAERS Safety Report 11909925 (Version 1)
Quarter: 2016Q1

REPORT INFORMATION
  Report Type: Report from Study
  Country: US (occurrence: US)
  Receive Date: 20160112
  Receipt Date: 20160112
  Transmission Date: 20160526
  Serious: Yes (Hospitalization)
  Sender: FDA-Public Use
  Company Number: US-BAUSCH-BL-2016-000233

PATIENT
  Sex: Female

DRUGS (1)
  1. RELISTOR [Suspect]
     Active Substance: METHYLNALTREXONE BROMIDE
     Indication: IMPAIRED GASTRIC EMPTYING
     Route: 058
     Dates: start: 201511

REACTIONS (2)
  - Gastrointestinal hypomotility [Unknown]
  - Drug ineffective [Unknown]
